FAERS Safety Report 19305054 (Version 1)
Quarter: 2021Q2

REPORT INFORMATION
  Report Type: Report from Study
  Country: IT (occurrence: IT)
  Receive Date: 20210526
  Receipt Date: 20210526
  Transmission Date: 20210717
  Serious: Yes (Death, Other)
  Sender: FDA-Public Use
  Company Number: IT-AUROBINDO-AUR-APL-2021-021528

PATIENT
  Age: 5 Year
  Sex: Male

DRUGS (4)
  1. CLONAZEPAM. [Suspect]
     Active Substance: CLONAZEPAM
     Indication: EPILEPSY
     Dosage: UNK
  2. PHENOBARBITAL. [Suspect]
     Active Substance: PHENOBARBITAL
     Indication: EPILEPSY
     Dosage: UNK
     Route: 065
  3. TOPIRAMATE. [Suspect]
     Active Substance: TOPIRAMATE
     Indication: EPILEPSY
     Dosage: UNK
     Route: 065
  4. DIAZEPAM. [Suspect]
     Active Substance: DIAZEPAM
     Indication: EPILEPSY
     Dosage: UNK(INTERMITTENT)
     Route: 065

REACTIONS (3)
  - Drug ineffective [Unknown]
  - Pneumonia aspiration [Fatal]
  - Drug resistance [Unknown]
